FAERS Safety Report 9214459 (Version 1)
Quarter: 2013Q2

REPORT INFORMATION
  Report Type: Spontaneous
  Country: JP (occurrence: JP)
  Receive Date: 20130405
  Receipt Date: 20130405
  Transmission Date: 20140414
  Serious: Yes (Hospitalization)
  Sender: FDA-Public Use
  Company Number: JP-SANOFI-AVENTIS-2013SA035738

PATIENT
  Age: 72 Year
  Sex: Male

DRUGS (9)
  1. ELPLAT [Suspect]
     Indication: COLON CANCER
     Route: 041
     Dates: start: 20130118, end: 20130118
  2. ELPLAT [Suspect]
     Indication: COLON CANCER
     Route: 041
     Dates: start: 20130201, end: 20130201
  3. 5-FU [Suspect]
     Indication: COLON CANCER
     Route: 040
     Dates: start: 20130118, end: 20130118
  4. 5-FU [Suspect]
     Indication: COLON CANCER
     Route: 041
     Dates: start: 20130118, end: 20130118
  5. 5-FU [Suspect]
     Indication: COLON CANCER
     Route: 040
     Dates: start: 20130201, end: 20130201
  6. 5-FU [Suspect]
     Indication: COLON CANCER
     Route: 041
     Dates: start: 20130201, end: 20130201
  7. CALCIUM LEVOFOLINATE [Concomitant]
     Dates: start: 20130118, end: 20130201
  8. GRANISETRON [Concomitant]
     Dates: start: 20130118, end: 20130201
  9. DEXART [Concomitant]
     Dates: start: 20130118, end: 20130201

REACTIONS (1)
  - Hyperammonaemia [Recovered/Resolved]
